FAERS Safety Report 23133843 (Version 2)
Quarter: 2023Q4

REPORT INFORMATION
  Report Type: Spontaneous
  Country: SE (occurrence: SE)
  Receive Date: 20231101
  Receipt Date: 20231120
  Transmission Date: 20240109
  Serious: Yes (Death, Other)
  Sender: FDA-Public Use
  Company Number: None

PATIENT
  Age: 32 Year
  Sex: Female
  Weight: 71 kg

DRUGS (11)
  1. ALPRAZOLAM [Suspect]
     Active Substance: ALPRAZOLAM
     Dosage: UNK
     Dates: start: 20220709, end: 20220710
  2. TOUJEO [Suspect]
     Active Substance: INSULIN GLARGINE
     Dosage: UNK
     Route: 058
     Dates: start: 20220709, end: 20220710
  3. MELATONIN [Concomitant]
     Active Substance: MELATONIN
     Dosage: 2 MG, PRN
     Route: 048
     Dates: start: 20220110, end: 20220712
  4. LATUDA [Concomitant]
     Active Substance: LURASIDONE HYDROCHLORIDE
     Dosage: 37 MG, QD
     Route: 048
     Dates: start: 20220609, end: 20220712
  5. BUPRENORPHINE [Concomitant]
     Active Substance: BUPRENORPHINE
     Dosage: 32 MG, QW
     Route: 058
     Dates: start: 20220119, end: 20220710
  6. TRINTELLIX [Concomitant]
     Active Substance: VORTIOXETINE HYDROBROMIDE
     Dosage: 10 MG, QD
     Route: 048
     Dates: start: 20220110, end: 20220710
  7. ZOPICLONE ORION [Concomitant]
     Dosage: 7.5 MG, PRN
     Route: 048
     Dates: start: 20220524, end: 20220710
  8. PROPIOMAZIN ORIFARM [Concomitant]
     Dosage: 50 MG, QD
     Route: 048
     Dates: start: 20220110, end: 20220710
  9. HYDROCORTISONE\MICONAZOLE NITRATE [Concomitant]
     Active Substance: HYDROCORTISONE\MICONAZOLE NITRATE
     Dosage: 2 APPLICATIONS DAILY
     Route: 061
     Dates: end: 20230710
  10. OLANZAPINE [Concomitant]
     Active Substance: OLANZAPINE
     Dosage: 5 MG
     Route: 048
     Dates: start: 20220609, end: 20220712
  11. OLANZAPINE [Concomitant]
     Active Substance: OLANZAPINE
     Dosage: 5 MG, QD
     Route: 048
     Dates: start: 20220609, end: 20220712

REACTIONS (6)
  - Pneumonia aspiration [Fatal]
  - Completed suicide [Fatal]
  - Brain injury [Fatal]
  - Toxicity to various agents [Fatal]
  - Prescription drug used without a prescription [Fatal]
  - Hypoglycaemia [Fatal]

NARRATIVE: CASE EVENT DATE: 20220710
